FAERS Safety Report 5158657-6 (Version None)
Quarter: 2006Q4

REPORT INFORMATION
  Report Type: 
  Country: None (occurrence: None)
  Receive Date: 20061128
  Receipt Date: 20061114
  Transmission Date: 20070319
  Serious: Yes (Hospitalization)
  Sender: FDA-Public Use
  Company Number: 2006GB02062

PATIENT
  Age: 70 Year
  Sex: Male

DRUGS (15)
  1. MEROPENEM [Suspect]
     Indication: INFECTION
     Route: 042
     Dates: start: 20060826, end: 20060829
  2. ALLOPURINOL [Concomitant]
     Indication: BLOOD URIC ACID INCREASED
     Route: 048
     Dates: start: 20060817, end: 20060826
  3. BRIMONIDINE TARTRATE [Concomitant]
     Route: 047
  4. CALCICHEW [Concomitant]
     Route: 048
  5. DALTEPARIN SODIUM [Concomitant]
     Indication: DEEP VEIN THROMBOSIS
     Route: 058
     Dates: start: 20060820, end: 20060826
  6. DORZOLAMIDE HCL [Concomitant]
     Route: 047
  7. FUROSEMIDE [Concomitant]
     Route: 048
  8. HYDROXYUREA [Concomitant]
     Indication: CHRONIC MYELOID LEUKAEMIA
     Route: 048
  9. LANSOPRAZOLE [Concomitant]
     Route: 048
     Dates: start: 20060816
  10. LATANOPROST [Concomitant]
     Route: 047
  11. MS CONTIN [Concomitant]
     Route: 048
     Dates: start: 20060814
  12. ORAMORPH SR [Concomitant]
     Indication: BREAKTHROUGH PAIN
     Route: 048
     Dates: start: 20060820
  13. ACETAMINOPHEN [Concomitant]
     Indication: ANALGESIC EFFECT
     Route: 048
  14. PILOCARPINE [Concomitant]
     Route: 047
  15. PIPERACILLIN AND TAZOBACTAM [Concomitant]
     Route: 042
     Dates: start: 20060819, end: 20060825

REACTIONS (1)
  - BLISTER [None]
